FAERS Safety Report 9247607 (Version 1)
Quarter: 2013Q2

REPORT INFORMATION
  Report Type: Spontaneous
  Country: US (occurrence: US)
  Receive Date: 20130423
  Receipt Date: 20130423
  Transmission Date: 20140414
  Serious: Yes (Hospitalization)
  Sender: FDA-Public Use
  Company Number: US-PFIZER INC-2013123460

PATIENT
  Age: 44 Year
  Sex: Female
  Weight: 86.17 kg

DRUGS (1)
  1. ZOLOFT [Suspect]
     Indication: ANXIETY
     Dosage: 200 MG, 1X/DAY
     Dates: start: 1994

REACTIONS (2)
  - Obesity [Unknown]
  - Dyspepsia [Unknown]
